FAERS Safety Report 4805894-3 (Version None)
Quarter: 2005Q4

REPORT INFORMATION
  Report Type: 
  Country: None (occurrence: None)
  Receive Date: 20051019
  Receipt Date: 20050929
  Transmission Date: 20060501
  Serious: Yes (Hospitalization)
  Sender: FDA-Public Use
  Company Number: USA050289830

PATIENT
  Age: 71 Year
  Sex: Female
  Weight: 68 kg

DRUGS (15)
  1. FORTEO [Suspect]
     Indication: OSTEOPOROSIS
     Dosage: 20 UG/1 DAY
     Dates: start: 20041206, end: 20050419
  2. COUMADIN [Concomitant]
  3. RESTORIL [Concomitant]
  4. ATIVAN [Concomitant]
  5. NEXIUM [Concomitant]
  6. CALCIUM GLUCONATE [Concomitant]
  7. TOPROL-XL [Concomitant]
  8. LISINOPRIL [Concomitant]
  9. HYDROCHLOROTHIAZIDE [Concomitant]
  10. GLUCOSAMINE [Concomitant]
  11. LEVOTHROID [Concomitant]
  12. LIDODERM (LIDOCAINE) [Concomitant]
  13. PHENERGAN [Concomitant]
  14. LOMOTIL [Concomitant]
  15. REGLAN [Concomitant]

REACTIONS (23)
  - ABDOMINAL PAIN UPPER [None]
  - ARTHRALGIA [None]
  - BACK PAIN [None]
  - BILE DUCT STONE [None]
  - BONE PAIN [None]
  - CHOLANGITIS [None]
  - CONTUSION [None]
  - DIARRHOEA [None]
  - INFECTION [None]
  - INJECTION SITE ERYTHEMA [None]
  - INSOMNIA [None]
  - JAUNDICE [None]
  - MUSCULOSKELETAL CHEST PAIN [None]
  - NAUSEA [None]
  - PAIN [None]
  - PAIN IN EXTREMITY [None]
  - PANCREATITIS [None]
  - PHARMACEUTICAL PRODUCT COMPLAINT [None]
  - PNEUMONIA KLEBSIELLA [None]
  - PYREXIA [None]
  - SEPSIS [None]
  - STOMACH DISCOMFORT [None]
  - VOMITING [None]
